FAERS Safety Report 6415544-0 (Version None)
Quarter: 2009Q4

REPORT INFORMATION
  Report Type: 
  Country: None (occurrence: None)
  Receive Date: 20091027
  Receipt Date: 20091020
  Transmission Date: 20100525
  Serious: Yes (Hospitalization, Other)
  Sender: FDA-Public Use
  Company Number: US-BAYER-200913754BCC

PATIENT
  Age: 38 Year
  Sex: Male
  Weight: 136 kg

DRUGS (5)
  1. MILK OF MAGNESIA TAB [Suspect]
     Indication: CONSTIPATION
     Dosage: CONSUMER TOOK 4 GULPS
     Route: 048
     Dates: start: 20090828, end: 20090828
  2. VALIUM [Concomitant]
     Route: 065
  3. OXYCONTIN [Concomitant]
     Route: 065
  4. UNKNOWN STEROID [Concomitant]
     Route: 065
  5. ^DELOTED^ [Concomitant]
     Route: 065

REACTIONS (3)
  - ABDOMINAL PAIN [None]
  - COLITIS ISCHAEMIC [None]
  - RECTAL HAEMORRHAGE [None]
